FAERS Safety Report 8961759 (Version 7)
Quarter: 2014Q1

REPORT INFORMATION
  Report Type: Spontaneous
  Country: JP (occurrence: JP)
  Receive Date: 20121213
  Receipt Date: 20140331
  Transmission Date: 20141002
  Serious: Yes (Hospitalization, Other)
  Sender: FDA-Public Use
  Company Number: JP-B.I. PHARMACEUTICALS,INC./RIDGEFIELD-2012-BI-02880GD

PATIENT
  Age: 83 Year
  Sex: Male
  Weight: 47.5 kg

DRUGS (9)
  1. DABIGATRAN ETEXILATE [Suspect]
     Indication: ATRIAL FIBRILLATION
     Dosage: 150 MG
     Route: 048
     Dates: end: 20120605
  2. LUPRAC [Concomitant]
     Dosage: 4 MG
     Route: 048
  3. ALDACTONE A [Concomitant]
     Dosage: 25 MG
     Route: 048
  4. MICARDIS [Concomitant]
     Dosage: 40 MG
     Route: 048
  5. ZYLORIC [Concomitant]
     Dosage: 100 MG
     Route: 048
  6. HALCION [Concomitant]
     Dosage: 0.25 MG
     Route: 065
  7. BENZALIN [Concomitant]
     Dosage: 5 MG
     Route: 065
  8. ITOROL [Concomitant]
     Route: 048
  9. TENORMIN [Concomitant]
     Dosage: 25 MG
     Route: 048

REACTIONS (12)
  - Coagulopathy [Recovered/Resolved]
  - Shock haemorrhagic [Not Recovered/Not Resolved]
  - Renal failure acute [Unknown]
  - Fall [Not Recovered/Not Resolved]
  - Contusion [Not Recovered/Not Resolved]
  - Gait disturbance [Not Recovered/Not Resolved]
  - Splenic injury [Not Recovered/Not Resolved]
  - Blood pressure immeasurable [Unknown]
  - Splenic haemorrhage [Unknown]
  - Blood pressure decreased [Unknown]
  - Wound secretion [Unknown]
  - Peritoneal haemorrhage [Unknown]
